FAERS Safety Report 10041629 (Version 1)
Quarter: 2014Q1

REPORT INFORMATION
  Report Type: Spontaneous
  Country: GB (occurrence: None)
  Receive Date: 20140325
  Receipt Date: 20140325
  Transmission Date: 20141002
  Serious: Yes (Life-Threatening)
  Sender: FDA-Public Use
  Company Number: PI-10212

PATIENT
  Age: 68 Year
  Sex: Male

DRUGS (13)
  1. CHLORAPREP (2% CHG/70% IPA) WITH FD + C YELLOW# 6 [Suspect]
     Indication: THERAPEUTIC SKIN CARE TOPICAL
     Route: 061
     Dates: start: 20140201
  2. CLINELL 2% WIPE [Concomitant]
  3. ALFACALCIDOL [Concomitant]
  4. ALUMINIUM HYDROXIDE [Concomitant]
  5. ASPIRIN [Concomitant]
  6. ATENOLOL [Concomitant]
  7. CLOPIDOGREL [Concomitant]
  8. LANTHANUM [Concomitant]
  9. LOSARTAN [Concomitant]
  10. NIFEDIPINE [Concomitant]
  11. OMACOR [Concomitant]
  12. ROSUVASTATIN [Concomitant]
  13. SODIUM BICARBONATE [Concomitant]

REACTIONS (3)
  - Skin irritation [None]
  - Scab [None]
  - Surgical procedure repeated [None]
